FAERS Safety Report 7799825-4 (Version None)
Quarter: 2011Q4

REPORT INFORMATION
  Report Type: 
  Country: None (occurrence: None)
  Receive Date: 20111006
  Receipt Date: 20111003
  Transmission Date: 20120403
  Serious: Yes (Other)
  Sender: FDA-Public Use
  Company Number: GB-AMGEN-GBRSP2011050807

PATIENT
  Sex: Female

DRUGS (4)
  1. LANSOPRAZOLE [Concomitant]
  2. ACETAMINOPHEN [Concomitant]
  3. PROLIA [Suspect]
     Indication: OSTEOPOROSIS
     Dosage: UNK UNK,
     Dates: start: 20110902
  4. CALCIUM CARBONATE [Concomitant]

REACTIONS (3)
  - RADIUS FRACTURE [None]
  - CELLULITIS [None]
  - ECZEMA [None]
